FAERS Safety Report 12127113 (Version 3)
Quarter: 2016Q2

REPORT INFORMATION
  Report Type: Spontaneous
  Country: US (occurrence: US)
  Receive Date: 20160229
  Receipt Date: 20160516
  Transmission Date: 20160815
  Serious: No
  Sender: FDA-Public Use
  Company Number: US-OTSUKA-2016_004949

PATIENT
  Sex: Female

DRUGS (1)
  1. SAMSCA [Suspect]
     Active Substance: TOLVAPTAN
     Indication: BLOOD SODIUM DECREASED
     Dosage: 15 MG, QD
     Route: 065
     Dates: start: 20151122, end: 20151230

REACTIONS (1)
  - No adverse event [Unknown]
